FAERS Safety Report 14776826 (Version 2)
Quarter: 2018Q2

REPORT INFORMATION
  Report Type: Report from Study
  Country: DE (occurrence: DE)
  Receive Date: 20180419
  Receipt Date: 20180421
  Transmission Date: 20180711
  Serious: Yes (Hospitalization)
  Sender: FDA-Public Use
  Company Number: DE-ROCHE-2105124

PATIENT
  Age: 51 Year
  Sex: Female

DRUGS (2)
  1. TRASTUZUMAB. [Suspect]
     Active Substance: TRASTUZUMAB
     Indication: BREAST CANCER METASTATIC
     Dosage: DATE OF LAST DOSE PRIOR TO SAE: 14/MAR/2018
     Route: 042
     Dates: start: 20170801
  2. PERTUZUMAB. [Suspect]
     Active Substance: PERTUZUMAB
     Indication: BREAST CANCER METASTATIC
     Dosage: DATE OF LAST DOSE PRIOR TO SAE: 14/MAR/2018
     Route: 042
     Dates: start: 20170801

REACTIONS (1)
  - Paresis [Recovered/Resolved]

NARRATIVE: CASE EVENT DATE: 20180409
